FAERS Safety Report 9115063 (Version 1)
Quarter: 2013Q1

REPORT INFORMATION
  Report Type: Spontaneous
  Country: US (occurrence: US)
  Receive Date: 20130225
  Receipt Date: 20130225
  Transmission Date: 20140127
  Serious: Yes (Other)
  Sender: FDA-Public Use
  Company Number: US-COVIDIEN/TYCO HEALTHCARE/MALLINCKRODT-T201204221

PATIENT
  Sex: Female

DRUGS (3)
  1. GABLOFEN [Suspect]
     Indication: MUSCLE SPASTICITY
     Dosage: 50 MCG/DAY
     Route: 037
  2. GABLOFEN [Suspect]
     Dosage: 100 MCG/DAY
     Route: 037
     Dates: start: 20120906
  3. GABLOFEN [Suspect]
     Dosage: 369 MCG/DAY
     Route: 037

REACTIONS (2)
  - Muscle spasticity [Unknown]
  - Drug ineffective [Unknown]
